FAERS Safety Report 22230134 (Version 1)
Quarter: 2023Q2

REPORT INFORMATION
  Report Type: Spontaneous
  Country: US (occurrence: US)
  Receive Date: 20230419
  Receipt Date: 20230419
  Transmission Date: 20230721
  Serious: No
  Sender: FDA-Public Use
  Company Number: US-EVOKE PHARMA, INC.-2023EVO000004

PATIENT

DRUGS (1)
  1. GIMOTI [Suspect]
     Active Substance: METOCLOPRAMIDE HYDROCHLORIDE
     Indication: Impaired gastric emptying
     Dosage: 15 MILLIGRAM,  1 SPRAY INTO ONE NOSTRIL FOUR TIMES A DAY BEFORE MEALS AND BEDTIME
     Route: 045
     Dates: end: 202301

REACTIONS (2)
  - Nasal discomfort [Unknown]
  - Nausea [Recovered/Resolved]
